FAERS Safety Report 5674044-6 (Version None)
Quarter: 2008Q1

REPORT INFORMATION
  Report Type: 
  Country: None (occurrence: None)
  Receive Date: 20080320
  Receipt Date: 20080311
  Transmission Date: 20080703
  Serious: Yes (Death, Hospitalization)
  Sender: FDA-Public Use
  Company Number: DEWYE773901JUN07

PATIENT
  Sex: Male
  Weight: 75 kg

DRUGS (4)
  1. TREVILOR RETARD [Suspect]
     Dosage: 4 CAPSULES EACH 75 MG (OVERDOSE AMOUNT 300 MG)
     Route: 048
     Dates: start: 20070530, end: 20070530
  2. MIRTAZAPINE [Suspect]
     Dosage: 25 TABLETS EACH 15 MG (OVERDOSE AMOUNT 375 MG)
     Route: 048
     Dates: start: 20070530, end: 20070530
  3. ETHANOL [Suspect]
     Dosage: OVERDOSE AMOUNT UNKNOWN
     Route: 048
     Dates: start: 20070530, end: 20070530
  4. IBUPROFEN [Suspect]
     Dosage: 13 TABLETS EACH 800 MG (OVERDOSE AMOUNT 10400 MG)
     Route: 048
     Dates: start: 20070530, end: 20070530

REACTIONS (10)
  - ALCOHOL WITHDRAWAL SYNDROME [None]
  - APNOEA [None]
  - ASPIRATION [None]
  - DRUG WITHDRAWAL SYNDROME [None]
  - ELECTROMECHANICAL DISSOCIATION [None]
  - HAEMATEMESIS [None]
  - HYPOXIC ENCEPHALOPATHY [None]
  - INTENTIONAL OVERDOSE [None]
  - PNEUMONIA ASPIRATION [None]
  - SOMNOLENCE [None]
